FAERS Safety Report 10767401 (Version 1)
Quarter: 2015Q1

REPORT INFORMATION
  Report Type: Spontaneous
  Country: TW (occurrence: TW)
  Receive Date: 20150205
  Receipt Date: 20150205
  Transmission Date: 20150721
  Serious: Yes (Hospitalization)
  Sender: FDA-Public Use
  Company Number: TW-MYLANLABS-2015M1003135

PATIENT

DRUGS (1)
  1. KETAMINE [Suspect]
     Active Substance: KETAMINE
     Route: 045

REACTIONS (3)
  - Cholelithiasis [Recovering/Resolving]
  - Lower urinary tract symptoms [Recovering/Resolving]
  - Drug abuse [Recovering/Resolving]
